FAERS Safety Report 15765486 (Version 1)
Quarter: 2018Q4

REPORT INFORMATION
  Report Type: Spontaneous
  Country: US (occurrence: US)
  Receive Date: 20181227
  Receipt Date: 20181227
  Transmission Date: 20190205
  Serious: No
  Sender: FDA-Public Use
  Company Number: US-SA-2018SA389635

PATIENT
  Sex: Female

DRUGS (3)
  1. HUMULIN NOS [Suspect]
     Active Substance: INSULIN HUMAN
     Route: 065
  2. NPH [ISOPHANE INSULIN] [Suspect]
     Active Substance: INSULIN NOS
     Route: 065
  3. LANTUS [Suspect]
     Active Substance: INSULIN GLARGINE
     Route: 065

REACTIONS (1)
  - Blood glucose decreased [Unknown]
